FAERS Safety Report 10762230 (Version 1)
Quarter: 2015Q1

REPORT INFORMATION
  Report Type: Report from Study
  Country: US (occurrence: US)
  Receive Date: 20150204
  Receipt Date: 20150204
  Transmission Date: 20150721
  Serious: Yes (Hospitalization)
  Sender: FDA-Public Use
  Company Number: US-MYLANLABS-2014SP003761

PATIENT
  Age: 58 Year
  Sex: Male

DRUGS (11)
  1. FLUOROURACIL. [Suspect]
     Active Substance: FLUOROURACIL
     Indication: COLON CANCER
     Dosage: 772 MG, BIWEEKLY
     Route: 040
     Dates: start: 20130819
  2. BEVACIZUMAB [Suspect]
     Active Substance: BEVACIZUMAB
     Indication: COLON CANCER
     Dosage: 386 MG, BIWEEKLY
     Dates: start: 20130819, end: 20140113
  3. FLUOROURACIL. [Suspect]
     Active Substance: FLUOROURACIL
     Dosage: 4632 MG, BIWEEKLY
     Route: 042
     Dates: start: 20130819, end: 20140113
  4. OXALIPLATIN. [Suspect]
     Active Substance: OXALIPLATIN
     Indication: COLON CANCER
     Dosage: 85 MG/M2, BIWEEKLY
     Route: 042
     Dates: start: 20130819
  5. FLUOROURACIL. [Suspect]
     Active Substance: FLUOROURACIL
     Dosage: 4632 MG, BIWEEKLY
     Route: 042
     Dates: start: 20131230
  6. IRINOTECAN [Suspect]
     Active Substance: IRINOTECAN
     Indication: COLON CANCER
     Dosage: 347 MG, BIWEEKLY
     Route: 042
     Dates: start: 20130819, end: 20140113
  7. FLUOROURACIL. [Suspect]
     Active Substance: FLUOROURACIL
     Dosage: 772 MG, BIWEEKLY
     Route: 040
     Dates: start: 20130821, end: 20140113
  8. IRINOTECAN [Suspect]
     Active Substance: IRINOTECAN
     Dosage: 347 MG, BIWEEKLY
     Route: 042
     Dates: start: 20131230
  9. CALCIUM FOLINATE [Suspect]
     Active Substance: LEUCOVORIN CALCIUM
     Indication: COLON CANCER
     Route: 042
     Dates: start: 20130819
  10. BEVACIZUMAB [Suspect]
     Active Substance: BEVACIZUMAB
     Dates: start: 20131230
  11. CALCIUM FOLINATE [Suspect]
     Active Substance: LEUCOVORIN CALCIUM
     Dosage: 386 MG, BIWEEKLY
     Route: 042
     Dates: start: 20130819, end: 20140113

REACTIONS (3)
  - Ascites [Unknown]
  - Clostridium difficile infection [Unknown]
  - Febrile neutropenia [Recovered/Resolved]

NARRATIVE: CASE EVENT DATE: 20140110
